FAERS Safety Report 6726792-4 (Version None)
Quarter: 2010Q2

REPORT INFORMATION
  Report Type: 
  Country: None (occurrence: None)
  Receive Date: 20100516
  Receipt Date: 20100505
  Transmission Date: 20101027
  Serious: Yes (Other)
  Sender: FDA-Public Use
  Company Number: US-JNJFOC-20100503042

PATIENT

DRUGS (3)
  1. CHILDREN'S MOTRIN COLD [Suspect]
     Route: 048
  2. CHILDREN'S MOTRIN COLD [Suspect]
     Indication: DRUG USE FOR UNKNOWN INDICATION
     Route: 048
  3. ANTIBIOTIC [Concomitant]

REACTIONS (3)
  - PRODUCT QUALITY ISSUE [None]
  - STAPHYLOCOCCAL INFECTION [None]
  - VOMITING [None]
